FAERS Safety Report 8833402 (Version 2)
Quarter: 2014Q2

REPORT INFORMATION
  Report Type: Spontaneous
  Country: ES (occurrence: ES)
  Receive Date: 20121010
  Receipt Date: 20131017
  Transmission Date: 20141212
  Serious: Yes (Hospitalization)
  Sender: FDA-Public Use
  Company Number: ES-PFIZER INC-2012249112

PATIENT
  Age: 68 Year
  Sex: Female

DRUGS (3)
  1. MORPHINE SULFATE [Suspect]
     Indication: CANCER PAIN
     Dosage: 60 MG, UNK
     Route: 048
     Dates: start: 20110601, end: 20120605
  2. SEVREDOL [Suspect]
     Indication: CANCER PAIN
     Dosage: 10 MG, UNK
     Route: 048
     Dates: start: 20101027, end: 20120605
  3. MATRIFEN [Concomitant]
     Indication: CANCER PAIN
     Dosage: 12 UG, UNK
     Dates: end: 20120601

REACTIONS (2)
  - Fall [Recovered/Resolved]
  - Hallucination, visual [Recovered/Resolved]
